FAERS Safety Report 6580169-3 (Version None)
Quarter: 2010Q1

REPORT INFORMATION
  Report Type: 
  Country: None (occurrence: None)
  Receive Date: 20100203
  Receipt Date: 20100119
  Transmission Date: 20100710
  Serious: Yes (Congenital Anomaly, Other)
  Sender: FDA-Public Use
  Company Number: 1000011553

PATIENT
  Sex: Female
  Weight: 3.9 kg

DRUGS (15)
  1. CITALOPRAM HYDROBROMIDE [Suspect]
     Dosage: TRANSPLACENTAL
     Route: 064
  2. LYRICA [Suspect]
     Dosage: 3 DOSAGE FORMS (1 DOSAGE FORMS, 3 IN 1 D), TRANSPLACENTAL
     Route: 064
     Dates: end: 20090401
  3. DOXIUM [Suspect]
     Dosage: 3 DOSAGE FORMS (1 DOSAGE FORMS, 3 IN 1 D), TRANSPLACENTAL
     Route: 064
     Dates: end: 20090401
  4. DICYNONE [Suspect]
     Dosage: 1 DOSAGE FORMS (1 DOSAGE FORMS,1 IN 1 D), TRANSPLACENTAL
     Route: 064
     Dates: end: 20090401
  5. DEROXAT [Suspect]
     Dosage: 2 DOSAGE FORMS (1 DOSAGE FORMS,2 IN 1 D), TRANSPLACENTAL
     Route: 064
     Dates: end: 20090401
  6. ALTEIS (20 MILLIGRAM) [Suspect]
     Dosage: TRANSPLACENTAL
     Route: 064
     Dates: end: 20090401
  7. TERCIAN (DROPS (FOR ORAL USE)) [Suspect]
     Dosage: TRANSPLACENTAL
     Route: 064
  8. LYSANXIA [Suspect]
     Dosage: 3 DOSAGE FORMS (1 DOSAGE FORMS,3 IN D,TRANSPLACENTAL)
     Route: 064
     Dates: end: 20090401
  9. DAFALGAN [Concomitant]
  10. APIDRA [Concomitant]
  11. FOLIO (FOLIC ACID) [Concomitant]
  12. MULTI-VITAMINS [Concomitant]
  13. DEXERYL [Concomitant]
  14. CALCIUM CARBONATE [Concomitant]
  15. CLOMIPRAMINE HCL [Concomitant]

REACTIONS (6)
  - ATRIAL SEPTAL DEFECT [None]
  - BREECH PRESENTATION [None]
  - CAESAREAN SECTION [None]
  - CONGENITAL ANOMALY [None]
  - MATERNAL DRUGS AFFECTING FOETUS [None]
  - PREMATURE BABY [None]
